FAERS Safety Report 8302220-2 (Version None)
Quarter: 2012Q2

REPORT INFORMATION
  Report Type: 
  Country: None (occurrence: None)
  Receive Date: 20120420
  Receipt Date: 20120414
  Transmission Date: 20120825
  Serious: Yes (Other)
  Sender: FDA-Public Use
  Company Number: US-BRISTOL-MYERS SQUIBB COMPANY-16522922

PATIENT
  Age: 72 Year
  Sex: Female
  Weight: 83 kg

DRUGS (2)
  1. ORENCIA [Suspect]
     Indication: RHEUMATOID ARTHRITIS
     Dosage: LAST INFUSION WAS ON 01MAR2012 STARTED OVER ONE YR AGO
     Route: 042
  2. METHOTREXATE [Concomitant]

REACTIONS (4)
  - DRUG INEFFECTIVE [None]
  - ARTHROPATHY [None]
  - NAUSEA [None]
  - FOOT DEFORMITY [None]
